FAERS Safety Report 16786101 (Version 1)
Quarter: 2019Q3

REPORT INFORMATION
  Report Type: Spontaneous
  Country: US (occurrence: US)
  Receive Date: 20190718
  Receipt Date: 20190718
  Transmission Date: 20191005
  Serious: No
  Sender: FDA-Public Use
  Company Number: None

PATIENT
  Age: 63 Year
  Sex: Female

DRUGS (1)
  1. MAYZENT [Suspect]
     Active Substance: SIPONIMOD
     Indication: PRODUCT USED FOR UNKNOWN INDICATION
     Route: 048

REACTIONS (6)
  - Urinary tract infection [None]
  - Pyrexia [None]
  - Fall [None]
  - Hallucination [None]
  - Conjunctivitis [None]
  - Sleep terror [None]

NARRATIVE: CASE EVENT DATE: 20190718
